FAERS Safety Report 19857316 (Version 2)
Quarter: 2021Q4

REPORT INFORMATION
  Report Type: Spontaneous
  Country: US (occurrence: US)
  Receive Date: 20210920
  Receipt Date: 20211223
  Transmission Date: 20220303
  Serious: Yes (Hospitalization)
  Sender: FDA-Public Use
  Company Number: US-NOVARTISPH-NVSC2021US209411

PATIENT
  Age: 66 Year
  Sex: Female

DRUGS (4)
  1. ALPELISIB [Suspect]
     Active Substance: ALPELISIB
     Indication: Breast cancer metastatic
     Dosage: UNK
     Route: 065
  2. FULVESTRANT [Concomitant]
     Active Substance: FULVESTRANT
     Indication: Breast cancer metastatic
     Dosage: UNK
     Route: 065
  3. ALLOPURINOL [Concomitant]
     Active Substance: ALLOPURINOL
     Indication: Hyperuricaemia
     Dosage: UNK
     Route: 065
  4. RASBURICASE [Concomitant]
     Active Substance: RASBURICASE
     Indication: Hyperuricaemia
     Dosage: UNK
     Route: 065

REACTIONS (1)
  - Tumour lysis syndrome [Recovered/Resolved]
